FAERS Safety Report 5815548-2 (Version None)
Quarter: 2008Q3

REPORT INFORMATION
  Report Type: 
  Country: None (occurrence: None)
  Receive Date: 20080718
  Receipt Date: 20080702
  Transmission Date: 20090109
  Serious: Yes (Hospitalization)
  Sender: FDA-Public Use
  Company Number: JP-GENENTECH-264238

PATIENT
  Sex: Male
  Weight: 61 kg

DRUGS (4)
  1. BEVACIZUMAB [Suspect]
     Indication: RECTAL CANCER
     Dosage: 5 MG/KG, UNK
     Route: 041
     Dates: start: 20070928
  2. OXALIPLATIN [Suspect]
     Indication: RECTAL CANCER RECURRENT
     Dosage: 70 MG/M2, UNK
     Route: 041
     Dates: start: 20070928
  3. FLUOROURACIL [Suspect]
     Indication: RECTAL CANCER RECURRENT
     Dosage: 300 MG/M2, UNK
     Route: 042
     Dates: start: 20070928
  4. CALCIUM LEVOFOLINATE [Suspect]
     Indication: RECTAL CANCER RECURRENT
     Dosage: 100 MG/M2, UNK
     Route: 041
     Dates: start: 20070928

REACTIONS (1)
  - GRANULOCYTOPENIA [None]
